FAERS Safety Report 9752630 (Version 1)
Quarter: 2013Q4

REPORT INFORMATION
  Report Type: Spontaneous
  Country: IT (occurrence: None)
  Receive Date: 20131211
  Receipt Date: 20131211
  Transmission Date: 20140711
  Serious: Yes (Other)
  Sender: FDA-Public Use
  Company Number: AUR-APL-2013-10203

PATIENT
  Age: 55 Year
  Sex: Male

DRUGS (2)
  1. LAMIVUDINE [Suspect]
     Indication: HEPATITIS B
     Dates: start: 2005
  2. ADEFOVIR [Suspect]
     Indication: HEPATITIS B

REACTIONS (3)
  - Hepatocellular carcinoma [None]
  - Gene mutation [None]
  - Hepatitis B [None]
